FAERS Safety Report 8290959 (Version 2)
Quarter: 2013Q2

REPORT INFORMATION
  Report Type: Spontaneous
  Country: US (occurrence: None)
  Receive Date: 20111122
  Receipt Date: 20120426
  Transmission Date: 20140414
  Serious: Yes (Other)
  Sender: FDA-Public Use
  Company Number: PHHY2011US57716

PATIENT
  Age: 35 Year
  Sex: Male

DRUGS (1)
  1. GILENYA [Suspect]
     Indication: MULTIPLE SCLEROSIS
     Dosage: 0.5 MG, DAILY, ORAL
     Route: 048
     Dates: start: 20110425

REACTIONS (7)
  - Photosensitivity reaction [None]
  - RHINORRHOEA [None]
  - SNEEZING [None]
  - COUGH [None]
  - Influenza like illness [None]
  - Pain [None]
  - Chills [None]
